FAERS Safety Report 5720475-5 (Version None)
Quarter: 2008Q2

REPORT INFORMATION
  Report Type: 
  Country: None (occurrence: None)
  Receive Date: 20080428
  Receipt Date: 20080418
  Transmission Date: 20081010
  Serious: Yes (Other)
  Sender: FDA-Public Use
  Company Number: KR-PFIZER INC-2008035275

PATIENT
  Sex: Male

DRUGS (2)
  1. CARDURA [Suspect]
     Indication: BENIGN PROSTATIC HYPERPLASIA
     Route: 048
  2. ALL OTHER THERAPEUTIC PRODUCTS [Concomitant]
     Dosage: FREQ:IN THE MORNING
     Route: 048

REACTIONS (3)
  - ANORECTAL DISORDER [None]
  - CONSTIPATION [None]
  - HYPERHIDROSIS [None]
